FAERS Safety Report 4777663-4 (Version None)
Quarter: 2005Q3

REPORT INFORMATION
  Report Type: 
  Country: None (occurrence: None)
  Receive Date: 20050921
  Receipt Date: 20050902
  Transmission Date: 20060218
  Serious: Yes (Hospitalization, Other)
  Sender: FDA-Public Use
  Company Number: USA0509107264

PATIENT
  Age: 49 Year
  Sex: Female

DRUGS (6)
  1. STRATTERA [Suspect]
     Indication: ATTENTION DEFICIT/HYPERACTIVITY DISORDER
     Dosage: 80 MG
     Dates: start: 20030413
  2. LORAZEPAM [Concomitant]
  3. ZOLOFT [Concomitant]
  4. FLONASE [Concomitant]
  5. PREVACID [Concomitant]
  6. NAPROXEN [Concomitant]

REACTIONS (6)
  - ANAPLASTIC CHOROID PLEXUS PAPILLOMA [None]
  - CHOLECYSTECTOMY [None]
  - HEADACHE [None]
  - HYDROCEPHALUS [None]
  - INCONTINENCE [None]
  - ROAD TRAFFIC ACCIDENT [None]
